FAERS Safety Report 11263659 (Version 2)
Quarter: 2015Q3

REPORT INFORMATION
  Report Type: Spontaneous
  Country: US (occurrence: None)
  Receive Date: 20150709
  Receipt Date: 20150818
  Transmission Date: 20151125
  Serious: Yes (Death, Hospitalization)
  Sender: FDA-Public Use
  Company Number: 1224850-2015-00047

PATIENT
  Age: 68 Year
  Sex: Female
  Weight: 113.5 kg

DRUGS (24)
  1. LIBERTY CYCLER [Concomitant]
     Active Substance: DEVICE
  2. DEFLEX PD SOLUTION [Concomitant]
  3. LANTUS [Concomitant]
     Active Substance: INSULIN GLARGINE
  4. CALCIUM ACETATE. [Suspect]
     Active Substance: CALCIUM ACETATE
     Indication: HYPERPHOSPHATAEMIA
     Route: 048
  5. ASPIRIN. [Concomitant]
     Active Substance: ASPIRIN
  6. LEVOTHYROXINE. [Concomitant]
     Active Substance: LEVOTHYROXINE
  7. ALLOPURINOL. [Concomitant]
     Active Substance: ALLOPURINOL
  8. HEPARIN [Concomitant]
     Active Substance: HEPARIN SODIUM
  9. HYDROXYZINE HCL [Concomitant]
     Active Substance: HYDROXYZINE HYDROCHLORIDE
  10. GABAPENTIN. [Concomitant]
     Active Substance: GABAPENTIN
  11. LIBERTY CYCLER CASSETTE [Concomitant]
     Active Substance: DEVICE
  12. ATORVASTATIN [Concomitant]
     Active Substance: ATORVASTATIN
  13. VASOPRESSIN. [Concomitant]
     Active Substance: VASOPRESSIN
  14. CEFEPIME [Concomitant]
     Active Substance: CEFEPIME HYDROCHLORIDE
  15. MIDODRINE [Concomitant]
     Active Substance: MIDODRINE
  16. OMEPRAZOLE. [Concomitant]
     Active Substance: OMEPRAZOLE
  17. SERTRALINE [Concomitant]
     Active Substance: SERTRALINE HYDROCHLORIDE
  18. VITAMIN B COMPLEX WITH C AND FOLIC ACID [Concomitant]
  19. CINACALCET [Concomitant]
     Active Substance: CINACALCET
  20. METRONIDAZOLE. [Concomitant]
     Active Substance: METRONIDAZOLE
  21. NOREPINEPHRINE [Concomitant]
     Active Substance: NOREPINEPHRINE\NOREPINEPHRINE BITARTRATE
  22. FLUDROCORTISONE [Concomitant]
     Active Substance: FLUDROCORTISONE
  23. MELOXICAM. [Concomitant]
     Active Substance: MELOXICAM
  24. VANCOMYCIN [Concomitant]
     Active Substance: VANCOMYCIN

REACTIONS (20)
  - Acute myocardial infarction [None]
  - Cardiac failure congestive [None]
  - Syncope [None]
  - Renal impairment [None]
  - Sepsis [None]
  - Hypotension [None]
  - Pulseless electrical activity [None]
  - Multi-organ failure [None]
  - Dyspnoea [None]
  - Atrial flutter [None]
  - Cardio-respiratory arrest [None]
  - Ventricular tachycardia [None]
  - Acute respiratory failure [None]
  - Acidosis [None]
  - Bundle branch block right [None]
  - Clostridium difficile colitis [None]
  - Atrial fibrillation [None]
  - Sinus tachycardia [None]
  - Leukocytosis [None]
  - Peritonitis bacterial [None]

NARRATIVE: CASE EVENT DATE: 20150510
